FAERS Safety Report 6993429-9 (Version None)
Quarter: 2010Q3

REPORT INFORMATION
  Report Type: 
  Country: None (occurrence: None)
  Receive Date: 20100917
  Receipt Date: 20100114
  Transmission Date: 20110219
  Serious: No
  Sender: FDA-Public Use
  Company Number: US-ASTRAZENECA-2010SE01772

PATIENT
  Age: 67 Year
  Sex: Male

DRUGS (3)
  1. SEROQUEL [Suspect]
     Indication: DEPRESSION
     Route: 048
     Dates: start: 20090701, end: 20090801
  2. SEROQUEL [Suspect]
     Route: 048
     Dates: start: 20090801, end: 20091001
  3. SEROQUEL [Suspect]
     Route: 048
     Dates: start: 20091001

REACTIONS (1)
  - THERAPEUTIC RESPONSE UNEXPECTED [None]
